FAERS Safety Report 18237610 (Version 1)
Quarter: 2020Q3

REPORT INFORMATION
  Report Type: Spontaneous
  Country: FR (occurrence: FR)
  Receive Date: 20200907
  Receipt Date: 20200907
  Transmission Date: 20201103
  Serious: Yes (Hospitalization)
  Sender: FDA-Public Use
  Company Number: FR-ACCORD-199747

PATIENT
  Age: 81 Year
  Sex: Male

DRUGS (13)
  1. DUROGESIC [Concomitant]
     Active Substance: FENTANYL
     Route: 062
  2. TANGANIL [Concomitant]
     Active Substance: ACETYLLEUCINE
     Dosage: 500 MG, TABLET
     Route: 048
  3. VFEND [Suspect]
     Active Substance: VORICONAZOLE
     Indication: ASPERGILLUS INFECTION
     Dosage: 200 MG FILM?COATED TABLETS
     Route: 048
     Dates: start: 20200224, end: 20200307
  4. VENLAFAXINE [Concomitant]
     Active Substance: VENLAFAXINE HYDROCHLORIDE
     Route: 048
  5. KARDEGIC [Concomitant]
     Active Substance: ASPIRIN DL-LYSINE
     Dosage: 75 MG POWDER FOR ORAL SOLUTION IN SACHET?DOSE
     Route: 048
  6. RAMIPRIL. [Suspect]
     Active Substance: RAMIPRIL
     Indication: MYOCARDIAL ISCHAEMIA
     Route: 048
     Dates: end: 20200307
  7. FUROSEMIDE. [Concomitant]
     Active Substance: FUROSEMIDE
     Route: 048
  8. DUROGESIC [Concomitant]
     Active Substance: FENTANYL
     Route: 062
  9. ISOPHANE INSULIN [Concomitant]
     Active Substance: INSULIN NOS
     Route: 058
  10. EUTHYRAL [Concomitant]
     Active Substance: LEVOTHYROXINE SODIUM\LIOTHYRONINE SODIUM
     Dosage: SCORED TABLET
     Route: 048
  11. BISOPROLOL [Concomitant]
     Active Substance: BISOPROLOL
     Route: 048
  12. LANSOPRAZOLE. [Concomitant]
     Active Substance: LANSOPRAZOLE
     Route: 048
  13. LASILIX SPECIAL [Concomitant]
     Active Substance: FUROSEMIDE
     Dosage: 500 MG, SCORED TABLET
     Route: 048

REACTIONS (4)
  - Hallucination, visual [Recovered/Resolved]
  - Acute kidney injury [Recovering/Resolving]
  - Condition aggravated [Recovered/Resolved]
  - Confusional state [Recovered/Resolved]

NARRATIVE: CASE EVENT DATE: 20200306
